FAERS Safety Report 22090593 (Version 1)
Quarter: 2023Q1

REPORT INFORMATION
  Report Type: Spontaneous
  Country: CN (occurrence: CN)
  Receive Date: 20230313
  Receipt Date: 20230313
  Transmission Date: 20230418
  Serious: Yes (Other)
  Sender: FDA-Public Use
  Company Number: CN-BoehringerIngelheim-2023-BI-224535

PATIENT
  Age: 85 Year
  Sex: Female
  Weight: 37.800 kg

DRUGS (3)
  1. COMBIVENT [Suspect]
     Active Substance: ALBUTEROL SULFATE\IPRATROPIUM BROMIDE
     Indication: Respiratory failure
     Route: 055
     Dates: start: 20230306, end: 20230307
  2. FLUIMUCIL [Suspect]
     Active Substance: ACETYLCYSTEINE
     Indication: Respiratory failure
     Route: 055
     Dates: start: 20230306, end: 20230307
  3. PULMICORT RESPULES [Suspect]
     Active Substance: BUDESONIDE
     Indication: Respiratory failure
     Dosage: DOSAGE FORM OF BUDESONIDE SUSPENSION FOR INHALATION: SUSPENSION
     Route: 055
     Dates: start: 20230306, end: 20230307

REACTIONS (2)
  - Tachypnoea [Recovered/Resolved]
  - Chest discomfort [Recovered/Resolved]

NARRATIVE: CASE EVENT DATE: 20230307
